FAERS Safety Report 8588532-6 (Version None)
Quarter: 2012Q3

REPORT INFORMATION
  Report Type: 
  Country: None (occurrence: None)
  Receive Date: 20120813
  Receipt Date: 20120807
  Transmission Date: 20120928
  Serious: Yes (Hospitalization)
  Sender: FDA-Public Use
  Company Number: JP-JNJFOC-20120515323

PATIENT
  Age: 82 Year
  Sex: Male

DRUGS (8)
  1. GALANTAMINE HYDROBROMIDE [Suspect]
     Indication: DEMENTIA ALZHEIMER'S TYPE
     Route: 048
  2. GALANTAMINE HYDROBROMIDE [Suspect]
     Route: 048
     Dates: start: 20120326, end: 20120514
  3. CANDESARTAN CILEXETIL [Concomitant]
     Indication: HYPERTENSION
     Route: 048
  4. LIVALO [Concomitant]
     Indication: HYPERLIPIDAEMIA
     Route: 048
  5. TORSEMIDE [Concomitant]
     Indication: PRODUCT USED FOR UNKNOWN INDICATION
     Route: 048
  6. ALLOPURINOL [Suspect]
     Indication: HYPERURICAEMIA
     Route: 048
     Dates: end: 20120514
  7. VESICARE [Concomitant]
     Indication: PRODUCT USED FOR UNKNOWN INDICATION
     Route: 048
  8. ZOLPIDEM [Concomitant]
     Indication: INSOMNIA
     Route: 048

REACTIONS (3)
  - DIARRHOEA [None]
  - CONVULSION [None]
  - RASH [None]
